FAERS Safety Report 5104169-5 (Version None)
Quarter: 2006Q3

REPORT INFORMATION
  Report Type: 
  Country: None (occurrence: None)
  Receive Date: 20060911
  Receipt Date: 20060822
  Transmission Date: 20061208
  Serious: Yes (Other)
  Sender: FDA-Public Use
  Company Number: BE200608004416

PATIENT
  Age: 41 Year
  Sex: Female

DRUGS (1)
  1. CYMBALTA [Suspect]
     Indication: ANXIETY DISORDER
     Dosage: 60 MG, DAILY (1/D), ORAL
     Route: 048

REACTIONS (5)
  - ARRHYTHMIA [None]
  - MALAISE [None]
  - PALPITATIONS [None]
  - SYNCOPE [None]
  - WEIGHT INCREASED [None]
